FAERS Safety Report 7830759-2 (Version None)
Quarter: 2011Q4

REPORT INFORMATION
  Report Type: 
  Country: None (occurrence: None)
  Receive Date: 20111021
  Receipt Date: 20111012
  Transmission Date: 20120403
  Serious: Yes (Death)
  Sender: FDA-Public Use
  Company Number: US-GLAXOSMITHKLINE-A0845535A

PATIENT
  Age: 57 Year
  Sex: Male
  Weight: 113.6 kg

DRUGS (6)
  1. GLYBURIDE [Concomitant]
  2. AVANDIA [Suspect]
     Indication: TYPE 2 DIABETES MELLITUS
     Dosage: 4MG TWICE PER DAY
     Route: 048
     Dates: start: 20000619, end: 20040708
  3. SYNTHROID [Concomitant]
  4. ACCUPRIL [Concomitant]
  5. LIPITOR [Concomitant]
  6. METFORMIN HCL [Concomitant]

REACTIONS (4)
  - HYPERTENSION [None]
  - CHEST PAIN [None]
  - MYOCARDIAL INFARCTION [None]
  - CARDIAC ARREST [None]
